FAERS Safety Report 5090038-6 (Version None)
Quarter: 2006Q3

REPORT INFORMATION
  Report Type: 
  Country: None (occurrence: None)
  Receive Date: 20060731
  Receipt Date: 20060524
  Transmission Date: 20061208
  Serious: Yes (Other)
  Sender: FDA-Public Use
  Company Number: 200612643BWH

PATIENT
  Age: 33 Year
  Sex: Female

DRUGS (8)
  1. AVELOX [Suspect]
     Indication: UPPER RESPIRATORY TRACT INFECTION
     Dosage: 400 MG, QD, ORAL
     Route: 048
     Dates: start: 20050314, end: 20050314
  2. XOPENEX [Concomitant]
  3. ALBUTEROL [Concomitant]
  4. SINGULAIR [Concomitant]
  5. PULMICORT [Concomitant]
  6. ATROVENT [Concomitant]
  7. CLARITIN [Concomitant]
  8. PREDNISONE TAB [Concomitant]

REACTIONS (1)
  - DYSPNOEA [None]
